FAERS Safety Report 11445365 (Version 3)
Quarter: 2016Q1

REPORT INFORMATION
  Report Type: Report from Study
  Country: JP (occurrence: JP)
  Receive Date: 20150902
  Receipt Date: 20160114
  Transmission Date: 20160525
  Serious: Yes (Hospitalization, Disabling)
  Sender: FDA-Public Use
  Company Number: JP-ROCHE-1629102

PATIENT
  Age: 73 Year
  Sex: Male
  Weight: 64.06 kg

DRUGS (59)
  1. RANIBIZUMAB [Suspect]
     Active Substance: RANIBIZUMAB
     Route: 050
     Dates: start: 20140624
  2. RANIBIZUMAB [Suspect]
     Active Substance: RANIBIZUMAB
     Route: 050
     Dates: start: 20150217
  3. RANIBIZUMAB [Suspect]
     Active Substance: RANIBIZUMAB
     Route: 050
     Dates: start: 20150616
  4. BLINDED VERTEPORFIN PDT [Suspect]
     Active Substance: VERTEPORFIN
     Indication: POLYPOIDAL CHOROIDAL VASCULOPATHY
     Route: 050
     Dates: start: 20131101, end: 20150714
  5. NORVASC [Concomitant]
     Active Substance: AMLODIPINE BESYLATE
     Route: 065
     Dates: end: 20140826
  6. CEFCAPENE [Concomitant]
     Active Substance: CEFCAPENE
     Route: 065
     Dates: start: 20141202, end: 20141205
  7. FLUMETHOLON [Concomitant]
     Active Substance: FLUOROMETHOLONE
     Route: 065
     Dates: start: 20141203, end: 20150307
  8. RANIBIZUMAB [Suspect]
     Active Substance: RANIBIZUMAB
     Route: 050
     Dates: start: 20150314
  9. MUCOSTA [Concomitant]
     Active Substance: REBAMIPIDE
  10. MAGMITT [Concomitant]
     Active Substance: MAGNESIUM OXIDE
     Route: 065
     Dates: start: 20140826
  11. FLUMARIN (FLOMOXEF) [Concomitant]
     Route: 065
     Dates: start: 20141202, end: 20141202
  12. ISODINE (JAPAN) [Concomitant]
     Route: 065
     Dates: start: 20141202, end: 20141202
  13. IPRAGLIFLOZIN [Concomitant]
     Active Substance: IPRAGLIFLOZIN
     Route: 065
     Dates: start: 20140827
  14. URINORM (JAPAN) [Concomitant]
     Route: 065
     Dates: start: 20140826
  15. RANIBIZUMAB [Suspect]
     Active Substance: RANIBIZUMAB
     Route: 050
     Dates: start: 20140722
  16. RANIBIZUMAB [Suspect]
     Active Substance: RANIBIZUMAB
     Route: 050
     Dates: start: 20140916
  17. VITANEURIN [Concomitant]
     Route: 065
     Dates: start: 20080215, end: 20140826
  18. DOMPERIDONE [Concomitant]
     Active Substance: DOMPERIDONE
     Route: 065
     Dates: start: 20140827
  19. ALDACTONE A [Concomitant]
     Active Substance: SPIRONOLACTONE
     Route: 065
     Dates: end: 20140826
  20. BOSMIN [Concomitant]
     Active Substance: EPINEPHRINE
     Route: 065
     Dates: start: 20141202, end: 20141202
  21. OFLOXACIN. [Concomitant]
     Active Substance: OFLOXACIN
     Route: 065
     Dates: start: 20141202, end: 20141202
  22. RANIBIZUMAB [Suspect]
     Active Substance: RANIBIZUMAB
     Route: 050
     Dates: start: 20131126, end: 20150714
  23. RANIBIZUMAB [Suspect]
     Active Substance: RANIBIZUMAB
     Route: 050
     Dates: start: 20131224
  24. RANIBIZUMAB [Suspect]
     Active Substance: RANIBIZUMAB
     Route: 050
     Dates: start: 20140325
  25. RANIBIZUMAB [Suspect]
     Active Substance: RANIBIZUMAB
     Route: 050
     Dates: start: 20141021
  26. RANIBIZUMAB [Suspect]
     Active Substance: RANIBIZUMAB
     Route: 050
     Dates: start: 20141216
  27. AMARYL [Concomitant]
     Active Substance: GLIMEPIRIDE
  28. SODIUM CHLORIDE. [Concomitant]
     Active Substance: SODIUM CHLORIDE
     Route: 065
     Dates: start: 20141202, end: 20141202
  29. RANIBIZUMAB [Suspect]
     Active Substance: RANIBIZUMAB
     Route: 050
     Dates: start: 20140128
  30. RANIBIZUMAB [Suspect]
     Active Substance: RANIBIZUMAB
     Route: 050
     Dates: start: 20140225
  31. RANIBIZUMAB [Suspect]
     Active Substance: RANIBIZUMAB
     Route: 050
     Dates: start: 20140527
  32. TRAMCET [Concomitant]
     Active Substance: ACETAMINOPHEN\TRAMADOL
     Route: 065
     Dates: start: 20080215
  33. LUNESTA [Concomitant]
     Active Substance: ESZOPICLONE
     Route: 065
     Dates: start: 20141203, end: 20141203
  34. ECARD [Concomitant]
     Active Substance: CANDESARTAN CILEXETIL\HYDROCHLOROTHIAZIDE
     Route: 065
     Dates: start: 20140827
  35. L CARTIN FF [Concomitant]
     Active Substance: LEVOCARNITINE
     Route: 065
     Dates: start: 20140827
  36. HYALURONATE SODIUM [Concomitant]
     Active Substance: HYALURONATE SODIUM
     Route: 065
     Dates: start: 20141202, end: 20141202
  37. VOLTAREN [Concomitant]
     Active Substance: DICLOFENAC SODIUM
     Route: 065
     Dates: end: 20140826
  38. RANIBIZUMAB [Suspect]
     Active Substance: RANIBIZUMAB
     Route: 050
     Dates: start: 20140819
  39. RANIBIZUMAB [Suspect]
     Active Substance: RANIBIZUMAB
     Route: 050
     Dates: start: 20150113
  40. RANIBIZUMAB [Suspect]
     Active Substance: RANIBIZUMAB
     Route: 050
     Dates: start: 20150414
  41. ADALAT [Concomitant]
     Active Substance: NIFEDIPINE
     Route: 065
     Dates: start: 20140827
  42. DICLOD [Concomitant]
     Active Substance: DICLOFENAC SODIUM
     Route: 065
     Dates: start: 20141203, end: 20150307
  43. GATIFLO [Concomitant]
     Active Substance: GATIFLOXACIN
     Route: 065
     Dates: start: 20141130, end: 20141202
  44. RANIBIZUMAB [Suspect]
     Active Substance: RANIBIZUMAB
     Indication: POLYPOIDAL CHOROIDAL VASCULOPATHY
     Route: 050
     Dates: start: 20131029
  45. RANIBIZUMAB [Suspect]
     Active Substance: RANIBIZUMAB
     Route: 050
     Dates: start: 20140422
  46. RANIBIZUMAB [Suspect]
     Active Substance: RANIBIZUMAB
     Route: 050
     Dates: start: 20141118
  47. RANIBIZUMAB [Suspect]
     Active Substance: RANIBIZUMAB
     Route: 050
     Dates: start: 20150519
  48. DOMPERIDONE [Concomitant]
     Active Substance: DOMPERIDONE
     Route: 065
     Dates: start: 20080215, end: 20140826
  49. OMEPRAL [Concomitant]
     Active Substance: OMEPRAZOLE
     Route: 065
     Dates: end: 20140826
  50. SHAKUYAKUKANZOTO [Concomitant]
     Active Substance: HERBALS
     Route: 065
     Dates: start: 20140826
  51. RANIBIZUMAB [Suspect]
     Active Substance: RANIBIZUMAB
     Route: 050
     Dates: start: 20150714, end: 20150714
  52. BLOPRESS [Concomitant]
     Active Substance: CANDESARTAN CILEXETIL
     Route: 065
     Dates: end: 20140826
  53. PRORENAL (JAPAN) [Concomitant]
     Active Substance: LIMAPROST
     Route: 065
     Dates: start: 20080803
  54. LUNESTA [Concomitant]
     Active Substance: ESZOPICLONE
     Route: 065
     Dates: start: 20131101, end: 20131103
  55. LOXONIN [Concomitant]
     Active Substance: LOXOPROFEN SODIUM
     Route: 065
     Dates: start: 20140826
  56. BOSMIN [Concomitant]
     Active Substance: EPINEPHRINE
     Route: 065
     Dates: start: 20141202, end: 20141202
  57. BSS PLUS [Concomitant]
     Active Substance: CALCIUM CHLORIDE\DEXTROSE\MAGNESIUM CHLORIDE\OXIGLUTATIONE\POTASSIUM CHLORIDE\SODIUM BICARBONATE\SODIUM CHLORIDE\SODIUM PHOSPHATE\SODIUM PHOSPHATE, DIBASIC
     Route: 065
     Dates: start: 20141202, end: 20141202
  58. CRAVIT [Concomitant]
     Active Substance: LEVOFLOXACIN
     Route: 065
     Dates: start: 20141202, end: 20150307
  59. RINDERON V [Concomitant]
     Active Substance: BETAMETHASONE VALERATE
     Route: 065
     Dates: start: 20141202, end: 20141202

REACTIONS (2)
  - Macular hole [Not Recovered/Not Resolved]
  - Cataract [Recovered/Resolved]

NARRATIVE: CASE EVENT DATE: 20141201
